FAERS Safety Report 5499183-4 (Version None)
Quarter: 2007Q4

REPORT INFORMATION
  Report Type: 
  Country: None (occurrence: None)
  Receive Date: 20071026
  Receipt Date: 20071017
  Transmission Date: 20080405
  Serious: Yes (Other)
  Sender: FDA-Public Use
  Company Number: AU-ASTRAZENECA-2007AP05719

PATIENT
  Age: 56 Year
  Sex: Male

DRUGS (8)
  1. SEROQUEL [Suspect]
     Indication: SCHIZOPHRENIA
     Dosage: DOSE TITRATED FROM 100 TO 200, UPTO 400 MG
     Route: 048
     Dates: start: 20061124, end: 20070913
  2. HALOPERIDOL INJECTIONS [Concomitant]
  3. ALDOMET [Concomitant]
  4. ENALAPRIL MALEATE [Concomitant]
  5. FRUSEMIDE [Concomitant]
  6. DURO-K [Concomitant]
     Dosage: 2 TABLETS TWICE A DAY
     Route: 048
  7. TRANSDERM-NITRO [Concomitant]
     Route: 062
  8. WARFARIN SODIUM [Concomitant]

REACTIONS (1)
  - CARDIOMYOPATHY [None]
